FAERS Safety Report 13234085 (Version 2)
Quarter: 2017Q2

REPORT INFORMATION
  Report Type: Spontaneous
  Country: FR (occurrence: FR)
  Receive Date: 20170215
  Receipt Date: 20170411
  Transmission Date: 20170830
  Serious: Yes (Other)
  Sender: FDA-Public Use
  Company Number: PHHY2017FR019948

PATIENT
  Age: 33 Year
  Sex: Male

DRUGS (1)
  1. COSENTYX [Suspect]
     Active Substance: SECUKINUMAB
     Indication: PSORIASIS
     Dosage: 300 MG, UNK (PER INJECTION)
     Route: 058
     Dates: start: 20161128

REACTIONS (5)
  - Petit mal epilepsy [Unknown]
  - Injection site pain [Recovered/Resolved]
  - Burning sensation [Unknown]
  - Mental disorder [Unknown]
  - Sensory loss [Unknown]

NARRATIVE: CASE EVENT DATE: 20161128
